FAERS Safety Report 4551039-7 (Version None)
Quarter: 2005Q1

REPORT INFORMATION
  Report Type: 
  Country: None (occurrence: None)
  Receive Date: 20050113
  Receipt Date: 20040630
  Transmission Date: 20050727
  Serious: No
  Sender: FDA-Public Use
  Company Number: US-BRISTOL-MYERS SQUIBB COMPANY-12630000

PATIENT
  Age: 64 Year
  Sex: Female
  Weight: 104 kg

DRUGS (1)
  1. DESYREL [Suspect]
     Indication: DEPRESSION
     Dosage: AT BEDTIME; STARTED THERAPY 6 YEARS AGO
     Route: 048
     Dates: start: 19980101

REACTIONS (1)
  - COLITIS ULCERATIVE [None]
